FAERS Safety Report 8623500-7 (Version None)
Quarter: 2012Q3

REPORT INFORMATION
  Report Type: 
  Country: None (occurrence: None)
  Receive Date: 20120827
  Receipt Date: 20120821
  Transmission Date: 20120928
  Serious: No
  Sender: FDA-Public Use
  Company Number: US-PFIZER INC-2012203583

PATIENT
  Sex: Female

DRUGS (1)
  1. NICOTROL [Suspect]
     Dosage: INHALE BETWEEN 6 AND 16 CARTRIDGES PER DAY AS DIRECTED

REACTIONS (3)
  - MALAISE [None]
  - OROPHARYNGEAL PAIN [None]
  - CHEILITIS [None]
